FAERS Safety Report 9414454 (Version 2)
Quarter: 2013Q3

REPORT INFORMATION
  Report Type: Spontaneous
  Country: CA (occurrence: CA)
  Receive Date: 20130723
  Receipt Date: 20130830
  Transmission Date: 20140515
  Serious: Yes (Hospitalization, Disabling, Other)
  Sender: FDA-Public Use
  Company Number: CA-BAYER-2013-085958

PATIENT
  Age: 36 Year
  Sex: Female
  Weight: 76 kg

DRUGS (3)
  1. CIPRO XL [Suspect]
     Indication: SINUSITIS
     Dosage: 1000 ML, QD
     Route: 048
     Dates: start: 20121115, end: 20121120
  2. ADVIL [Concomitant]
  3. TYLENOL [PARACETAMOL] [Concomitant]

REACTIONS (12)
  - Trigeminal neuralgia [Not Recovered/Not Resolved]
  - Aptyalism [Not Recovered/Not Resolved]
  - Asthenia [Not Recovered/Not Resolved]
  - Dry mouth [Not Recovered/Not Resolved]
  - Optic neuritis [Not Recovered/Not Resolved]
  - Spinal pain [Not Recovered/Not Resolved]
  - Tendon pain [Not Recovered/Not Resolved]
  - Arthralgia [Not Recovered/Not Resolved]
  - Confusional state [Not Recovered/Not Resolved]
  - Feeling abnormal [Not Recovered/Not Resolved]
  - Neuropathy peripheral [Not Recovered/Not Resolved]
  - Thinking abnormal [Not Recovered/Not Resolved]
